FAERS Safety Report 5773251-1 (Version None)
Quarter: 2008Q2

REPORT INFORMATION
  Report Type: 
  Country: None (occurrence: None)
  Receive Date: 20080613
  Receipt Date: 20080613
  Transmission Date: 20081010
  Serious: Yes (Hospitalization)
  Sender: FDA-Public Use
  Company Number: None

PATIENT
  Sex: Male
  Weight: 72.5755 kg

DRUGS (2)
  1. INDOCIN [Suspect]
     Indication: ARTHRALGIA
     Dosage: ONE CAPSULE  3 TIMES DAILY PO
     Route: 048
     Dates: start: 20080524, end: 20080603
  2. IBUROFEN [Concomitant]

REACTIONS (3)
  - DELUSION [None]
  - MAJOR DEPRESSION [None]
  - SUICIDAL BEHAVIOUR [None]
